FAERS Safety Report 9109575 (Version 1)
Quarter: 2013Q1

REPORT INFORMATION
  Report Type: Spontaneous
  Country: US (occurrence: US)
  Receive Date: 20130222
  Receipt Date: 20130222
  Transmission Date: 20140127
  Serious: No
  Sender: FDA-Public Use
  Company Number: US-PFIZER INC-2013016147

PATIENT
  Age: 57 Year
  Sex: Female
  Weight: 65.76 kg

DRUGS (1)
  1. CHANTIX [Suspect]
     Indication: SMOKING CESSATION THERAPY
     Dosage: UNK
     Dates: start: 201207, end: 201209

REACTIONS (3)
  - Abnormal dreams [Recovered/Resolved]
  - Emphysema [Not Recovered/Not Resolved]
  - Weight increased [Unknown]
